FAERS Safety Report 6491947-3 (Version None)
Quarter: 2009Q4

REPORT INFORMATION
  Report Type: 
  Country: None (occurrence: None)
  Receive Date: 20091208
  Receipt Date: 20091125
  Transmission Date: 20100525
  Serious: Yes (Other)
  Sender: FDA-Public Use
  Company Number: 8049192

PATIENT
  Sex: Female
  Weight: 90 kg

DRUGS (6)
  1. KEPPRA [Suspect]
     Dosage: (ORAL)
     Route: 048
     Dates: start: 20090715, end: 20090715
  2. DOXEPIN HCL [Suspect]
     Dosage: (ORAL)
     Route: 048
     Dates: start: 20090715, end: 20090715
  3. FLUANXOL  D [Suspect]
     Dosage: (ORAL)
     Route: 048
     Dates: start: 20090715, end: 20090715
  4. PROMETHAZINE [Suspect]
     Dosage: (ORAL)
     Route: 048
     Dates: start: 20090715, end: 20090715
  5. LORAZEPAM [Suspect]
     Dosage: (ORAL)
     Route: 048
     Dates: start: 20090715, end: 20090715
  6. VALPROIC ACID [Suspect]
     Dosage: (ORAL)
     Route: 048
     Dates: start: 20090715, end: 20090715

REACTIONS (6)
  - DEPRESSED LEVEL OF CONSCIOUSNESS [None]
  - DIZZINESS [None]
  - MULTIPLE DRUG OVERDOSE INTENTIONAL [None]
  - NAUSEA [None]
  - SUICIDE ATTEMPT [None]
  - TACHYCARDIA [None]
